FAERS Safety Report 7704882-7 (Version None)
Quarter: 2011Q3

REPORT INFORMATION
  Report Type: 
  Country: None (occurrence: None)
  Receive Date: 20110823
  Receipt Date: 20110818
  Transmission Date: 20111222
  Serious: Yes (Other)
  Sender: FDA-Public Use
  Company Number: US-PFIZER INC-2007035564

PATIENT
  Sex: Male
  Weight: 82.86 kg

DRUGS (1)
  1. NEURONTIN [Suspect]
     Indication: PAIN IN EXTREMITY
     Dosage: UNK

REACTIONS (4)
  - HEPATITIS [None]
  - NIGHTMARE [None]
  - DEPRESSION [None]
  - SUICIDAL IDEATION [None]
